FAERS Safety Report 5088767-3 (Version None)
Quarter: 2006Q3

REPORT INFORMATION
  Report Type: 
  Country: None (occurrence: None)
  Receive Date: 20060824
  Receipt Date: 20060824
  Transmission Date: 20061208
  Serious: Yes (Death)
  Sender: FDA-Public Use
  Company Number: None

PATIENT
  Sex: Female
  Weight: 65 kg

DRUGS (2)
  1. RITUXAN [Suspect]
     Indication: NON-HODGKIN'S LYMPHOMA
     Dates: start: 20060519, end: 20060712
  2. CYCLOPHOSPHAMIDE [Suspect]
     Indication: NON-HODGKIN'S LYMPHOMA
     Dates: start: 20060519, end: 20060712

REACTIONS (13)
  - ACUTE RESPIRATORY DISTRESS SYNDROME [None]
  - ASTHENIA [None]
  - DIFFUSE ALVEOLAR DAMAGE [None]
  - GENERAL PHYSICAL HEALTH DETERIORATION [None]
  - HYPERPLASIA [None]
  - HYPONATRAEMIA [None]
  - INTERSTITIAL LUNG DISEASE [None]
  - LETHARGY [None]
  - LUNG INFILTRATION [None]
  - PNEUMOTHORAX [None]
  - PYREXIA [None]
  - SUBCUTANEOUS EMPHYSEMA [None]
  - THERAPY NON-RESPONDER [None]
